FAERS Safety Report 4738271-4 (Version None)
Quarter: 2005Q3

REPORT INFORMATION
  Report Type: 
  Country: None (occurrence: None)
  Receive Date: 20050805
  Receipt Date: 20050721
  Transmission Date: 20060218
  Serious: Yes (Other)
  Sender: FDA-Public Use
  Company Number: 2005109081

PATIENT
  Age: 64 Year
  Sex: Male

DRUGS (3)
  1. IRINOTECAN HCL [Suspect]
     Indication: RECTAL CANCER
     Dosage: INTRAVENOUS
     Route: 042
  2. 5-FU (FLUOROURACIL) [Concomitant]
  3. LEUCOVORIN CALCIUM [Concomitant]

REACTIONS (5)
  - GASTROINTESTINAL MUCOSAL DISORDER [None]
  - GASTROINTESTINAL NECROSIS [None]
  - INTESTINAL FUNCTIONAL DISORDER [None]
  - LARGE INTESTINE PERFORATION [None]
  - SMALL INTESTINAL PERFORATION [None]
